FAERS Safety Report 4407763-X (Version None)
Quarter: 2004Q3

REPORT INFORMATION
  Report Type: 
  Country: None (occurrence: None)
  Receive Date: 20040722
  Receipt Date: 20040709
  Transmission Date: 20050211
  Serious: Yes (Hospitalization)
  Sender: FDA-Public Use
  Company Number: 2004046491

PATIENT
  Age: 93 Year
  Sex: Female
  Weight: 48.0813 kg

DRUGS (1)
  1. POLYSPORIN [Suspect]
     Indication: WOUND
     Dosage: TOPICAL
     Route: 061
     Dates: start: 20040618

REACTIONS (7)
  - APPLICATION SITE INFLAMMATION [None]
  - DEHYDRATION [None]
  - DRUG INEFFECTIVE [None]
  - ERYTHEMA [None]
  - INFLAMMATION [None]
  - MUSCLE TWITCHING [None]
  - TRISMUS [None]
